FAERS Safety Report 19913663 (Version 3)
Quarter: 2022Q2

REPORT INFORMATION
  Report Type: Report from Study
  Country: US (occurrence: US)
  Receive Date: 20211004
  Receipt Date: 20220510
  Transmission Date: 20220721
  Serious: Yes (Hospitalization, Other)
  Sender: FDA-Public Use
  Company Number: US-SA-2019SA333627

PATIENT
  Age: 70 Year
  Sex: Female

DRUGS (3)
  1. DUPILUMAB [Suspect]
     Active Substance: DUPILUMAB
     Indication: Asthma
     Dosage: 600 MG, 1X
     Route: 058
     Dates: start: 20190801, end: 20190801
  2. DUPILUMAB [Suspect]
     Active Substance: DUPILUMAB
     Dosage: 300 MG, QOW
     Route: 058
     Dates: start: 201908, end: 202002
  3. DUPILUMAB [Suspect]
     Active Substance: DUPILUMAB
     Dosage: 300 MG, QOW
     Route: 058
     Dates: start: 2020, end: 2021

REACTIONS (14)
  - Wound infection [Recovering/Resolving]
  - Oxygen saturation decreased [Unknown]
  - Dyspnoea [Unknown]
  - Asthma [Not Recovered/Not Resolved]
  - Cough [Not Recovered/Not Resolved]
  - Fatigue [Unknown]
  - Weight decreased [Recovered/Resolved]
  - Weight increased [Recovering/Resolving]
  - Nasopharyngitis [Unknown]
  - Spondylitis [Not Recovered/Not Resolved]
  - Dysstasia [Not Recovered/Not Resolved]
  - Back injury [Not Recovered/Not Resolved]
  - Product dose omission issue [Unknown]
  - Product storage error [Unknown]

NARRATIVE: CASE EVENT DATE: 20200101
